FAERS Safety Report 8400205-9 (Version None)
Quarter: 2012Q2

REPORT INFORMATION
  Report Type: 
  Country: None (occurrence: None)
  Receive Date: 20120531
  Receipt Date: 20120521
  Transmission Date: 20120825
  Serious: Yes (Hospitalization)
  Sender: FDA-Public Use
  Company Number: BE-ABBOTT-12P-013-0926734-00

PATIENT
  Sex: Female
  Weight: 62 kg

DRUGS (5)
  1. IMODIUM [Concomitant]
     Indication: DIARRHOEA
     Route: 048
  2. HUMIRA [Suspect]
     Route: 058
     Dates: start: 20081219, end: 20081219
  3. HUMIRA [Suspect]
     Route: 058
  4. HUMIRA [Suspect]
     Route: 058
  5. HUMIRA [Suspect]
     Indication: CROHN'S DISEASE
     Route: 058
     Dates: start: 20081215

REACTIONS (1)
  - CROHN'S DISEASE [None]
